FAERS Safety Report 16630429 (Version 5)
Quarter: 2019Q4

REPORT INFORMATION
  Report Type: Report from Study
  Country: US (occurrence: US)
  Receive Date: 20190725
  Receipt Date: 20191113
  Transmission Date: 20200122
  Serious: No
  Sender: FDA-Public Use
  Company Number: PHEH2019US030698

PATIENT
  Age: 51 Year
  Sex: Male

DRUGS (1)
  1. GLATOPA [Suspect]
     Active Substance: GLATIRAMER ACETATE
     Indication: PRODUCT USED FOR UNKNOWN INDICATION
     Dosage: 40 MG, TIW (3 TIMES A WEEK)
     Route: 058

REACTIONS (5)
  - Injection site scar [Unknown]
  - Injection site mass [Unknown]
  - Needle issue [Unknown]
  - Injection site urticaria [Unknown]
  - Burning sensation [Unknown]

NARRATIVE: CASE EVENT DATE: 20190719
